FAERS Safety Report 15518774 (Version 1)
Quarter: 2018Q4

REPORT INFORMATION
  Report Type: Spontaneous
  Country: US (occurrence: US)
  Receive Date: 20181017
  Receipt Date: 20181017
  Transmission Date: 20190205
  Serious: No
  Sender: FDA-Public Use
  Company Number: US-SA-2018SA287594

PATIENT
  Age: 46 Year
  Sex: Female

DRUGS (1)
  1. SOLIQUA 100/33 [Suspect]
     Active Substance: INSULIN GLARGINE\LIXISENATIDE
     Indication: TYPE 2 DIABETES MELLITUS
     Dosage: 40 THEN 20 UNITS
     Dates: start: 20181009, end: 20181010

REACTIONS (2)
  - Hypoglycaemia [Unknown]
  - Rash generalised [Unknown]
